FAERS Safety Report 4929616-0 (Version None)
Quarter: 2006Q1

REPORT INFORMATION
  Report Type: 
  Country: None (occurrence: None)
  Receive Date: 20060224
  Receipt Date: 20060211
  Transmission Date: 20060701
  Serious: Yes (Other)
  Sender: FDA-Public Use
  Company Number: 2005172091

PATIENT
  Age: 59 Year
  Sex: Female
  Weight: 78.0187 kg

DRUGS (11)
  1. LIPITOR [Suspect]
     Indication: BLOOD CHOLESTEROL INCREASED
     Dosage: 10 MG (10 MG, 1 IN 1 D)
  2. PREDNISONE TAB [Suspect]
     Indication: ILL-DEFINED DISORDER
  3. WARFARIN SODIUM [Concomitant]
  4. NEXIUM [Concomitant]
  5. COZAAR [Concomitant]
  6. COREG [Concomitant]
  7. LASIX [Concomitant]
  8. MICRO-K (POTASSIUM CHLORIDE) [Concomitant]
  9. DARVOCET [Concomitant]
  10. NITROSTAT [Concomitant]
  11. ALBUTEROL [Concomitant]

REACTIONS (5)
  - ARTHROPATHY [None]
  - BONE DISORDER [None]
  - CARDIAC FAILURE CONGESTIVE [None]
  - MYALGIA [None]
  - PAIN IN EXTREMITY [None]
